FAERS Safety Report 10498493 (Version 1)
Quarter: 2014Q4

REPORT INFORMATION
  Report Type: Spontaneous
  Country: US (occurrence: None)
  Receive Date: 20141003
  Receipt Date: 20141003
  Transmission Date: 20150528
  Serious: Yes (Other)
  Sender: FDA-Public Use
  Company Number: None

PATIENT
  Age: 26 Year
  Sex: Male
  Weight: 58.97 kg

DRUGS (1)
  1. OLANZAPINE. [Suspect]
     Active Substance: OLANZAPINE
     Indication: ANXIETY
     Dosage: 1/2 PILL ONCE DAILY TAKEN BY MOUTH
     Route: 048
     Dates: start: 20140920, end: 20140921

REACTIONS (3)
  - Anxiety [None]
  - Product quality issue [None]
  - Depression [None]

NARRATIVE: CASE EVENT DATE: 20140920
